FAERS Safety Report 9206744 (Version 2)
Quarter: 2014Q1

REPORT INFORMATION
  Report Type: Spontaneous
  Country: US (occurrence: US)
  Receive Date: 20130403
  Receipt Date: 20140204
  Transmission Date: 20141002
  Serious: Yes (Other)
  Sender: FDA-Public Use
  Company Number: US-BAYER-2013-040656

PATIENT
  Age: 16 Year
  Sex: Female

DRUGS (14)
  1. YASMIN [Suspect]
     Dosage: UNK
     Dates: start: 2005, end: 2006
  2. CYCLOBENZAPRINE [Concomitant]
     Dosage: 10 MG, UNK
  3. HYOSCYAMINE [Concomitant]
     Dosage: 125 MG, UNK
  4. IBUPROFEN [Concomitant]
     Dosage: 800 MG, UNK
  5. ACETAMINOPHEN W/CODEINE [Concomitant]
  6. CIMETIDINE [Concomitant]
     Dosage: 800 MG, UNK
  7. CEPHALEXIN [Concomitant]
     Dosage: 500 MG, UNK
  8. ZOFRAN [Concomitant]
     Dosage: 4 MG, UNK
  9. PROMETHAZINE [Concomitant]
     Dosage: 25 MG, UNK
  10. LOCOID [Concomitant]
     Dosage: 0.1 %, UNK
  11. LORATADINE [Concomitant]
     Dosage: 10 MG, UNK
  12. AMOXICILLIN W/CLAVULANATE POTASSIUM [Concomitant]
     Dosage: 875-125 MG
  13. SINGULAIR [Concomitant]
     Dosage: 10 MG, UNK
  14. NALEX DH [Concomitant]

REACTIONS (2)
  - Cholecystectomy [None]
  - Cholecystitis chronic [None]
